FAERS Safety Report 11766327 (Version 1)
Quarter: 2015Q4

REPORT INFORMATION
  Report Type: Spontaneous
  Country: CA (occurrence: CA)
  Receive Date: 20151123
  Receipt Date: 20151123
  Transmission Date: 20160304
  Serious: Yes (Other)
  Sender: FDA-Public Use
  Company Number: CA-ROCHE-1662335

PATIENT
  Age: 18 Year
  Sex: Female

DRUGS (3)
  1. PREDNISONE. [Concomitant]
     Active Substance: PREDNISONE
  2. XOLAIR [Suspect]
     Active Substance: OMALIZUMAB
     Indication: ASTHMA
     Route: 058
     Dates: start: 20130722
  3. AZITHROMYCIN [Concomitant]
     Active Substance: AZITHROMYCIN ANHYDROUS
     Route: 065

REACTIONS (9)
  - Ear pain [Recovered/Resolved]
  - Dyspnoea [Unknown]
  - Sinus congestion [Unknown]
  - Pulmonary function test decreased [Unknown]
  - Cough [Unknown]
  - Respiratory tract congestion [Unknown]
  - Oropharyngeal pain [Unknown]
  - Weight decreased [Unknown]
  - Nasal congestion [Unknown]

NARRATIVE: CASE EVENT DATE: 20150409
